FAERS Safety Report 7048851-1 (Version None)
Quarter: 2010Q4

REPORT INFORMATION
  Report Type: 
  Country: None (occurrence: None)
  Receive Date: 20101018
  Receipt Date: 20101013
  Transmission Date: 20110411
  Serious: Yes (Life-Threatening)
  Sender: FDA-Public Use
  Company Number: JP-ASTRAZENECA-2010SE48412

PATIENT
  Age: 58 Year
  Sex: Male

DRUGS (4)
  1. TENORMIN [Suspect]
     Route: 048
  2. AZELNIDIPINE [Suspect]
     Route: 048
  3. IRBESARTAN [Suspect]
     Route: 048
  4. NIFEDIPINE [Suspect]
     Route: 048

REACTIONS (3)
  - MULTIPLE DRUG OVERDOSE INTENTIONAL [None]
  - SHOCK [None]
  - SUICIDE ATTEMPT [None]
